FAERS Safety Report 12828888 (Version 1)
Quarter: 2016Q4

REPORT INFORMATION
  Report Type: Spontaneous
  Country: US (occurrence: US)
  Receive Date: 20161007
  Receipt Date: 20161007
  Transmission Date: 20170207
  Serious: No
  Sender: FDA-Public Use
  Company Number: US-SA-2015SA173500

PATIENT
  Age: 57 Year
  Sex: Male

DRUGS (11)
  1. NUVIGIL [Concomitant]
     Active Substance: ARMODAFINIL
  2. ABILIFY [Concomitant]
     Active Substance: ARIPIPRAZOLE
  3. DEPAKOTE [Concomitant]
     Active Substance: DIVALPROEX SODIUM
  4. ZOCOR [Concomitant]
     Active Substance: SIMVASTATIN
  5. NEURONTIN [Concomitant]
     Active Substance: GABAPENTIN
  6. TECFIDERA [Concomitant]
     Active Substance: DIMETHYL FUMARATE
  7. ZANTAC [Concomitant]
     Active Substance: RANITIDINE HYDROCHLORIDE
  8. BACLOFEN. [Concomitant]
     Active Substance: BACLOFEN
  9. RISPERDAL [Concomitant]
     Active Substance: RISPERIDONE
  10. AUBAGIO [Suspect]
     Active Substance: TERIFLUNOMIDE
     Indication: MULTIPLE SCLEROSIS
     Route: 048
     Dates: start: 201510
  11. BUSPAR [Concomitant]
     Active Substance: BUSPIRONE HYDROCHLORIDE

REACTIONS (1)
  - Fatigue [Recovering/Resolving]

NARRATIVE: CASE EVENT DATE: 201510
